FAERS Safety Report 12108524 (Version 1)
Quarter: 2016Q1

REPORT INFORMATION
  Report Type: Spontaneous
  Country: US (occurrence: US)
  Receive Date: 20160224
  Receipt Date: 20160224
  Transmission Date: 20160526
  Serious: Yes (Hospitalization)
  Sender: FDA-Public Use
  Company Number: US-BAUSCH-BL-2016-003473

PATIENT
  Age: 60 Year
  Sex: Male

DRUGS (1)
  1. AMOBARBITAL SODIUM [Suspect]
     Active Substance: AMOBARBITAL SODIUM
     Indication: POSTOPERATIVE CARE
     Route: 030

REACTIONS (1)
  - Neuritis [Unknown]
